FAERS Safety Report 6764093-9 (Version None)
Quarter: 2010Q2

REPORT INFORMATION
  Report Type: 
  Country: None (occurrence: None)
  Receive Date: 20100608
  Receipt Date: 20100603
  Transmission Date: 20101027
  Serious: No
  Sender: FDA-Public Use
  Company Number: 011302

PATIENT
  Sex: Female

DRUGS (4)
  1. ROTIGOTINE [Suspect]
     Dosage: 14 MG QD TRANSDERMAL
     Route: 062
     Dates: start: 20060403
  2. CARBILEV [Concomitant]
  3. ALZAM [Concomitant]
  4. ANAFRANIL [Concomitant]

REACTIONS (2)
  - PNEUMONIA [None]
  - SEPSIS [None]
